FAERS Safety Report 24875425 (Version 2)
Quarter: 2025Q1

REPORT INFORMATION
  Report Type: Spontaneous
  Country: CN (occurrence: CN)
  Receive Date: 20250122
  Receipt Date: 20250128
  Transmission Date: 20250408
  Serious: Yes (Other)
  Sender: PFIZER
  Company Number: CN-PFIZER INC-PV202500008699

PATIENT
  Age: 76 Year
  Sex: Female

DRUGS (2)
  1. CIBINQO [Suspect]
     Active Substance: ABROCITINIB
     Dosage: 100 MG, 1X/DAY
  2. CIBINQO [Suspect]
     Active Substance: ABROCITINIB
     Dosage: 100MG, QOD

REACTIONS (4)
  - Pulmonary embolism [Recovering/Resolving]
  - Joint injury [Unknown]
  - Fibrin D dimer increased [Unknown]
  - Off label use [Unknown]

NARRATIVE: CASE EVENT DATE: 20250120
